FAERS Safety Report 22169153 (Version 2)
Quarter: 2025Q2

REPORT INFORMATION
  Report Type: Spontaneous
  Country: FR (occurrence: FR)
  Receive Date: 20230404
  Receipt Date: 20250617
  Transmission Date: 20250716
  Serious: Yes (Life-Threatening, Hospitalization, Other)
  Sender: AUROBINDO
  Company Number: FR-AFSSAPS-PC20200513

PATIENT
  Age: 35 Year
  Sex: Female

DRUGS (14)
  1. CEFTRIAXONE [Suspect]
     Active Substance: CEFTRIAXONE
     Indication: Septic shock
     Route: 042
     Dates: start: 20180928
  2. CEFTRIAXONE [Suspect]
     Active Substance: CEFTRIAXONE
     Indication: Respiratory tract infection
  3. CEFTAZIDIME [Suspect]
     Active Substance: CEFTAZIDIME
     Indication: Respiratory tract infection
     Route: 042
     Dates: start: 20180928
  4. PIPERACILLIN AND TAZOBACTAM [Suspect]
     Active Substance: PIPERACILLIN SODIUM\TAZOBACTAM SODIUM
     Indication: Respiratory tract infection
     Route: 065
  5. CEFOTAXIME [Suspect]
     Active Substance: CEFOTAXIME SODIUM
     Indication: Product used for unknown indication
     Route: 065
  6. AMIKACIN SULFATE [Concomitant]
     Active Substance: AMIKACIN SULFATE
     Indication: Septic shock
     Route: 042
     Dates: start: 20180928
  7. AMIKACIN SULFATE [Concomitant]
     Active Substance: AMIKACIN SULFATE
     Indication: Respiratory tract infection
  8. BACTRIM [Concomitant]
     Active Substance: SULFAMETHOXAZOLE\TRIMETHOPRIM
     Indication: Septic shock
     Route: 042
     Dates: start: 20180928
  9. COTRIMOXAZOLE [Concomitant]
     Active Substance: SULFAMETHOXAZOLE\TRIMETHOPRIM
     Indication: Respiratory tract infection
     Route: 042
     Dates: start: 20180928
  10. CEFTAZIDIME [Concomitant]
     Active Substance: CEFTAZIDIME
     Indication: Septic shock
     Route: 042
     Dates: start: 20180928
  11. Pentamidina [Concomitant]
     Indication: Respiratory tract infection
     Route: 065
  12. SPIRAMYCIN [Concomitant]
     Active Substance: SPIRAMYCIN
     Indication: Respiratory tract infection
     Route: 065
  13. PIPERACILLIN SODIUM\TAZOBACTAM SODIUM [Concomitant]
     Active Substance: PIPERACILLIN SODIUM\TAZOBACTAM SODIUM
     Indication: Cough
     Route: 042
     Dates: start: 20180929
  14. PIPERACILLIN SODIUM\TAZOBACTAM SODIUM [Concomitant]
     Active Substance: PIPERACILLIN SODIUM\TAZOBACTAM SODIUM
     Indication: Respiratory tract infection

REACTIONS (3)
  - Generalised bullous fixed drug eruption [Recovered/Resolved]
  - Product prescribing error [Recovered/Resolved]
  - Fixed eruption [Recovered/Resolved]

NARRATIVE: CASE EVENT DATE: 20180930
